FAERS Safety Report 15383366 (Version 2)
Quarter: 2018Q4

REPORT INFORMATION
  Report Type: Spontaneous
  Country: PL (occurrence: PL)
  Receive Date: 20180913
  Receipt Date: 20181002
  Transmission Date: 20190204
  Serious: Yes (Hospitalization)
  Sender: FDA-Public Use
  Company Number: PHHY2018PL092428

PATIENT
  Age: 10 Year
  Sex: Female

DRUGS (6)
  1. HYDROCORTISONE. [Suspect]
     Active Substance: HYDROCORTISONE
     Indication: ACUTE HAEMORRHAGIC OEDEMA OF INFANCY
     Dosage: UNK
     Route: 061
  2. AZITHROMYCIN ANHYDROUS. [Suspect]
     Active Substance: AZITHROMYCIN ANHYDROUS
     Indication: ACUTE HAEMORRHAGIC OEDEMA OF INFANCY
     Dosage: UNK
     Route: 048
  3. BETAMETHASONE. [Suspect]
     Active Substance: BETAMETHASONE
     Indication: ACUTE HAEMORRHAGIC OEDEMA OF INFANCY
     Route: 061
  4. CLOTRIMAZOLE. [Suspect]
     Active Substance: CLOTRIMAZOLE
     Indication: ACUTE HAEMORRHAGIC OEDEMA OF INFANCY
     Dosage: UNK
     Route: 061
  5. GENTAMICIN. [Suspect]
     Active Substance: GENTAMICIN
     Indication: ACUTE HAEMORRHAGIC OEDEMA OF INFANCY
     Dosage: UNK
     Route: 061
  6. SODIUM CHLORIDE. [Concomitant]
     Active Substance: SODIUM CHLORIDE
     Indication: VIRAL UPPER RESPIRATORY TRACT INFECTION
     Dosage: UNK
     Route: 065

REACTIONS (1)
  - Drug ineffective [Recovered/Resolved]

NARRATIVE: CASE EVENT DATE: 201512
